FAERS Safety Report 4678824-5 (Version None)
Quarter: 2005Q2

REPORT INFORMATION
  Report Type: 
  Country: None (occurrence: None)
  Receive Date: 20050531
  Receipt Date: 20050519
  Transmission Date: 20051028
  Serious: Yes (Other)
  Sender: FDA-Public Use
  Company Number: 2005071499

PATIENT
  Sex: Male
  Weight: 108.8633 kg

DRUGS (3)
  1. ZANTAC 150 [Suspect]
     Dosage: ORAL
     Route: 048
  2. ROLAIDS [Suspect]
     Indication: GASTROOESOPHAGEAL REFLUX DISEASE
     Dosage: 10 TO 20 TABS DAILY, ORAL
     Route: 048
  3. FAMOTIDINE [Concomitant]

REACTIONS (1)
  - GASTRIC ULCER HAEMORRHAGE [None]
